FAERS Safety Report 13281135 (Version 2)
Quarter: 2018Q1

REPORT INFORMATION
  Report Type: Report from Study
  Country: US (occurrence: US)
  Receive Date: 20170301
  Receipt Date: 20180212
  Transmission Date: 20180508
  Serious: No
  Sender: FDA-Public Use
  Company Number: US-AMAG PHARMACEUTICALS, INC.-AMAG201700227

PATIENT
  Age: 0 Year

DRUGS (1)
  1. MAKENA [Suspect]
     Active Substance: HYDROXYPROGESTERONE CAPROATE
     Indication: EXPOSURE DURING PREGNANCY
     Dosage: 250 MG/ML, WEEKLY
     Route: 065
     Dates: start: 20161010, end: 2017

REACTIONS (1)
  - Pyelocaliectasis [Not Recovered/Not Resolved]

NARRATIVE: CASE EVENT DATE: 20161227
